FAERS Safety Report 25069955 (Version 1)
Quarter: 2025Q1

REPORT INFORMATION
  Report Type: Spontaneous
  Country: IT (occurrence: IT)
  Receive Date: 20250312
  Receipt Date: 20250312
  Transmission Date: 20250409
  Serious: Yes (Other)
  Sender: MYLAN
  Company Number: None

PATIENT
  Age: 74 Year
  Sex: Female
  Weight: 47 kg

DRUGS (5)
  1. TRAMADOL [Suspect]
     Active Substance: TRAMADOL
     Indication: Pain
     Dates: start: 20241127, end: 20250101
  2. TAPENTADOL [Suspect]
     Active Substance: TAPENTADOL
     Indication: Pain
  3. IBRANCE [Suspect]
     Active Substance: PALBOCICLIB
     Indication: Breast cancer stage IV
     Dosage: 125 MILLIGRAM, QD (1 TIME/DAY FOR 14 DAYS, THEN FOLLOWED BY 7 DAYS BREAK)
     Dates: start: 20241127, end: 20250131
  4. LETROZOLE [Concomitant]
     Active Substance: LETROZOLE
     Indication: Breast cancer stage III
     Dosage: 2.5 MILLIGRAM, QD (1 TIME PER DAY)
     Dates: start: 20241106
  5. CHOLECALCIFEROL [Concomitant]
     Active Substance: CHOLECALCIFEROL
     Indication: Hypovitaminosis
     Dosage: 25000 INTERNATIONAL UNIT, QW (FOR 1 MONTH, THEN 1 VIAL EVERY 2 WEEKS)

REACTIONS (3)
  - Leukopenia [Recovering/Resolving]
  - Vertigo [Unknown]
  - Nausea [Unknown]

NARRATIVE: CASE EVENT DATE: 20241211
